FAERS Safety Report 8938358 (Version 1)
Quarter: 2012Q4

REPORT INFORMATION
  Report Type: Spontaneous
  Country: US (occurrence: None)
  Receive Date: 20121128
  Receipt Date: 20121128
  Transmission Date: 20130627
  Serious: Yes (Other)
  Sender: FDA-Public Use
  Company Number: None

PATIENT
  Age: 26 Year
  Sex: Female
  Weight: 61.24 kg

DRUGS (1)
  1. MIRENA [Suspect]
     Indication: CONTRACEPTION
     Dosage: once  Intra-uterine
     Route: 015
     Dates: start: 20081125, end: 20100615

REACTIONS (5)
  - Pregnancy with contraceptive device [None]
  - Device dislocation [None]
  - Caesarean section [None]
  - Device dislocation [None]
  - Exposure during pregnancy [None]
